FAERS Safety Report 23094976 (Version 1)
Quarter: 2023Q4

REPORT INFORMATION
  Report Type: Spontaneous
  Country: US (occurrence: US)
  Receive Date: 20231023
  Receipt Date: 20231023
  Transmission Date: 20240110
  Serious: Yes (Other)
  Sender: FDA-Public Use
  Company Number: US-drreddys-SPO/USA/23/0180245

PATIENT
  Age: 57 Year
  Sex: Female

DRUGS (1)
  1. ESTRADIOL CYPIONATE [Suspect]
     Active Substance: ESTRADIOL CYPIONATE
     Indication: Uterine haemorrhage

REACTIONS (2)
  - Pulmonary embolism [Unknown]
  - Electrocardiogram ST-T segment abnormal [Unknown]
